FAERS Safety Report 21398002 (Version 2)
Quarter: 2022Q4

REPORT INFORMATION
  Report Type: Report from Study
  Country: EC (occurrence: EC)
  Receive Date: 20220930
  Receipt Date: 20221202
  Transmission Date: 20230113
  Serious: Yes (Hospitalization)
  Sender: FDA-Public Use
  Company Number: EC-NALPROPION PHARMACEUTICALS INC.-EC-2022CUR023113

PATIENT
  Age: 22 Year
  Sex: Female

DRUGS (2)
  1. CONTRAVE [Suspect]
     Active Substance: BUPROPION HYDROCHLORIDE\NALTREXONE HYDROCHLORIDE
     Indication: Product used for unknown indication
     Dosage: 8MG/90MG (1 DF,1 IN 1 D)
     Route: 048
     Dates: start: 20220912, end: 202209
  2. CONTRAVE [Suspect]
     Active Substance: BUPROPION HYDROCHLORIDE\NALTREXONE HYDROCHLORIDE
     Dosage: 8MG/90MG (4 DF, 1 IN 1 D)
     Route: 048
     Dates: start: 202209, end: 20220921

REACTIONS (1)
  - Appendicectomy [Not Recovered/Not Resolved]

NARRATIVE: CASE EVENT DATE: 20220922
